FAERS Safety Report 10047880 (Version 1)
Quarter: 2014Q1

REPORT INFORMATION
  Report Type: Spontaneous
  Country: US (occurrence: None)
  Receive Date: 20140306
  Receipt Date: 20140306
  Transmission Date: 20141002
  Serious: Yes (Other)
  Sender: FDA-Public Use
  Company Number: 163-21880-13100376

PATIENT
  Sex: Female

DRUGS (10)
  1. REVLIMID (LENALIDOMIDE) (5 MILLIGRAM, CAPSULES) [Suspect]
     Indication: PLASMA CELL MYELOMA
     Dosage: 5 MG, 21 IN 21 D, PO
     Route: 048
     Dates: start: 20101110
  2. ASPIRINE (ACETYLSALICYLIC ACID) (CHEWABLE TABLET) [Concomitant]
  3. MULTIVITAMINS (MULTIVITAMINS) [Concomitant]
  4. SYNTHROID (LEVOTHYROXINE SODIUM) [Concomitant]
  5. SUCRALFATE (SUCRALFATE) [Concomitant]
  6. ACYCLOVIR (ACICLOVIR) [Concomitant]
  7. POTASSIUM (POTASSIUM) [Concomitant]
  8. NEXIUM (ESOMEPRAZOLE) [Concomitant]
  9. BUMEX (BUMETANIDE) [Concomitant]
  10. DECADRON (DEXAMETHASONE) [Concomitant]

REACTIONS (1)
  - Diverticulitis [None]
